FAERS Safety Report 15235188 (Version 1)
Quarter: 2018Q3

REPORT INFORMATION
  Report Type: Spontaneous
  Country: US (occurrence: US)
  Receive Date: 20180803
  Receipt Date: 20180803
  Transmission Date: 20181010
  Serious: Yes (Hospitalization)
  Sender: FDA-Public Use
  Company Number: US-B.I. PHARMACEUTICALS,INC./RIDGEFIELD-2018-BI-038578

PATIENT
  Age: 69 Year
  Sex: Female

DRUGS (16)
  1. BABY ASPIRIN [Concomitant]
     Active Substance: ASPIRIN
     Indication: PRODUCT USED FOR UNKNOWN INDICATION
     Dosage: ONE CAPLET DAILY;  FORM STRENGTH: 81MG; FORMULATION: CAPLET
     Route: 048
  2. ALPRAZOLAM. [Concomitant]
     Active Substance: ALPRAZOLAM
     Indication: ANXIETY
     Dosage: ONE CAPLET BID;  FORM STRENGTH: 0.25MG; FORMULATION: CAPLET
     Route: 048
  3. VITAMIN D3 [Concomitant]
     Active Substance: CHOLECALCIFEROL
     Indication: SUPPLEMENTATION THERAPY
     Dosage: ONE CAPSULE BID;  FORM STRENGTH: 1000IU; FORMULATION: CAPSULE
     Route: 048
  4. ALENDRONATE SODIUM. [Concomitant]
     Active Substance: ALENDRONATE SODIUM
     Indication: OSTEOPOROSIS
     Dosage: ONE CAPLET WEEKLY;  FORM STRENGTH: 70MG; FORMULATION: CAPLET
     Route: 048
  5. OMEPRAZOLE. [Concomitant]
     Active Substance: OMEPRAZOLE
     Indication: DYSPEPSIA
     Dosage: ONE CAPSULE DAILY;  FORM STRENGTH: 20MG; FORMULATION: CAPSULE
     Route: 048
  6. METFORMIN ER [Concomitant]
     Active Substance: METFORMIN HYDROCHLORIDE
     Indication: TYPE 2 DIABETES MELLITUS
     Dosage: 2 CAPLETS BID;  FORM STRENGTH: 500MG; FORMULATION: CAPLET
     Route: 048
  7. FUROSEMIDE. [Concomitant]
     Active Substance: FUROSEMIDE
     Indication: PERIPHERAL SWELLING
     Dosage: ONE CAPLET DAILY;  FORM STRENGTH: 20MG; FORMULATION: CAPLET
     Route: 048
  8. SIMVASTATIN. [Concomitant]
     Active Substance: SIMVASTATIN
     Indication: BLOOD CHOLESTEROL INCREASED
     Dosage: ONE CAPLET DAILY HS;  FORM STRENGTH: 40MG; FORMULATION: CAPLET
     Route: 048
  9. ALLOPURINOL. [Concomitant]
     Active Substance: ALLOPURINOL
     Indication: GOUT
     Dosage: ONE CAPLET DAILY;  FORM STRENGTH: 300MG; FORMULATION: CAPLET
     Route: 048
  10. VITAMIN C WITH ROSE HIPS [Concomitant]
     Indication: SUPPLEMENTATION THERAPY
     Dosage: ONE CAPLET DAILY;  FORM STRENGTH: 1000MG; FORMULATION: CAPLET
     Route: 048
  11. METOPROLOL SUCCINATE. [Concomitant]
     Active Substance: METOPROLOL SUCCINATE
     Indication: CARDIAC DISORDER
     Dosage: ONE CAPLET DAILY;  FORM STRENGTH: 50MG; FORMULATION: CAPLET
     Route: 048
  12. OSCAL D [Concomitant]
     Active Substance: CALCIUM CARBONATE\CHOLECALCIFEROL
     Indication: SUPPLEMENTATION THERAPY
     Dosage: ONE CAPLET QID;  FORM STRENGTH: 500MG/200IU; FORMULATION: CAPLET
     Route: 048
  13. EYE DROPS [Concomitant]
     Active Substance: UNSPECIFIED INGREDIENT
     Indication: DRY EYE
     Route: 065
  14. LISINOPRIL/HCTZ [Concomitant]
     Active Substance: HYDROCHLOROTHIAZIDE\LISINOPRIL
     Indication: HYPERTENSION
     Dosage: ONE CAPLET DAILY;  FORM STRENGTH AND DAILY DOSE: 10MG/12.5 MG; FORMULATION: CAPLET
     Route: 048
  15. LUTEIN [Concomitant]
     Active Substance: LUTEIN
     Indication: SUPPLEMENTATION THERAPY
     Route: 065
  16. PRADAXA [Suspect]
     Active Substance: DABIGATRAN ETEXILATE MESYLATE
     Indication: ATRIAL FIBRILLATION
     Route: 048
     Dates: start: 20160419

REACTIONS (1)
  - Thyroid mass [Recovered/Resolved]

NARRATIVE: CASE EVENT DATE: 201804
